FAERS Safety Report 6811298-4 (Version None)
Quarter: 2010Q2

REPORT INFORMATION
  Report Type: 
  Country: None (occurrence: None)
  Receive Date: 20100630
  Receipt Date: 20100111
  Transmission Date: 20101027
  Serious: No
  Sender: FDA-Public Use
  Company Number: US-AMGEN-KDL385503

PATIENT
  Sex: Female
  Weight: 88.5 kg

DRUGS (6)
  1. PROCRIT [Suspect]
     Indication: RENAL FAILURE CHRONIC
     Dates: start: 20090701
  2. GLIPIZIDE [Concomitant]
  3. CAL CITRATE [Concomitant]
  4. GABAPENTIN [Concomitant]
  5. FOLIC ACID [Concomitant]
  6. CARVEDILOL [Concomitant]

REACTIONS (1)
  - HAEMOGLOBIN DECREASED [None]
